FAERS Safety Report 7068154-9 (Version None)
Quarter: 2010Q4

REPORT INFORMATION
  Report Type: 
  Country: None (occurrence: None)
  Receive Date: 20101028
  Receipt Date: 20100915
  Transmission Date: 20110411
  Serious: Yes (Life-Threatening, Disabling, Other)
  Sender: FDA-Public Use
  Company Number: US-BAXTER-2009BH018877

PATIENT
  Age: 60 Year
  Sex: Female
  Weight: 68 kg

DRUGS (55)
  1. HEPARIN SODIUM INJECTION [Suspect]
     Indication: CORONARY ARTERY BYPASS
     Route: 042
     Dates: start: 20071203, end: 20071225
  2. HEPARIN SODIUM INJECTION [Suspect]
     Indication: INTRA-AORTIC BALLOON PLACEMENT
     Route: 042
     Dates: start: 20071203, end: 20071225
  3. HEPARIN SODIUM INJECTION [Suspect]
     Route: 042
     Dates: start: 20071206, end: 20071206
  4. HEPARIN SODIUM INJECTION [Suspect]
     Route: 042
     Dates: start: 20071206, end: 20071206
  5. HEPARIN SODIUM INJECTION [Suspect]
     Route: 042
     Dates: start: 20071212, end: 20071212
  6. HEPARIN SODIUM INJECTION [Suspect]
     Route: 042
     Dates: start: 20071212, end: 20071212
  7. HEPARIN SODIUM INJECTION [Suspect]
     Route: 042
     Dates: start: 20071212, end: 20071215
  8. HEPARIN SODIUM INJECTION [Suspect]
     Route: 042
     Dates: start: 20071212, end: 20071215
  9. HEPARIN SODIUM INJECTION [Suspect]
     Route: 042
     Dates: start: 20071206, end: 20071206
  10. HEPARIN SODIUM INJECTION [Suspect]
     Route: 042
     Dates: start: 20071206, end: 20071206
  11. HEPARIN SODIUM INJECTION [Suspect]
     Route: 042
     Dates: start: 20071212, end: 20071215
  12. HEPARIN SODIUM INJECTION [Suspect]
     Route: 042
     Dates: start: 20071212, end: 20071215
  13. HEPARIN SODIUM INJECTION [Suspect]
     Route: 042
     Dates: start: 20071215, end: 20071218
  14. HEPARIN SODIUM INJECTION [Suspect]
     Route: 042
     Dates: start: 20071215, end: 20071218
  15. HEPARIN SODIUM INJECTION [Suspect]
     Route: 042
     Dates: start: 20071206, end: 20071206
  16. HEPARIN SODIUM INJECTION [Suspect]
     Route: 042
     Dates: start: 20071206, end: 20071206
  17. HEPARIN SODIUM INJECTION [Suspect]
     Route: 042
     Dates: start: 20071215, end: 20071218
  18. HEPARIN SODIUM INJECTION [Suspect]
     Route: 042
     Dates: start: 20071215, end: 20071218
  19. HEPARIN SODIUM INJECTION [Suspect]
     Route: 042
     Dates: start: 20071204, end: 20071204
  20. HEPARIN SODIUM INJECTION [Suspect]
     Route: 042
     Dates: start: 20071204, end: 20071204
  21. HEPARIN SODIUM INJECTION [Suspect]
     Route: 042
     Dates: start: 20071203, end: 20071203
  22. HEPARIN SODIUM INJECTION [Suspect]
     Route: 042
     Dates: start: 20071203, end: 20071203
  23. HEPARIN SODIUM INJECTION [Suspect]
     Route: 042
     Dates: start: 20071206, end: 20071206
  24. HEPARIN SODIUM INJECTION [Suspect]
     Route: 042
     Dates: start: 20071206, end: 20071206
  25. HEPARIN SODIUM INJECTION [Suspect]
     Route: 042
     Dates: start: 20071205, end: 20071205
  26. HEPARIN SODIUM INJECTION [Suspect]
     Route: 042
     Dates: start: 20071205, end: 20071205
  27. HEPARIN SODIUM INJECTION [Suspect]
     Route: 042
     Dates: start: 20071207, end: 20071207
  28. HEPARIN SODIUM INJECTION [Suspect]
     Route: 042
     Dates: start: 20071207, end: 20071207
  29. HEPARIN SODIUM INJECTION [Suspect]
     Route: 042
     Dates: start: 20071206, end: 20071206
  30. HEPARIN SODIUM INJECTION [Suspect]
     Route: 042
     Dates: start: 20071206, end: 20071206
  31. HEPARIN SODIUM INJECTION [Suspect]
     Route: 042
     Dates: start: 20071207, end: 20071207
  32. HEPARIN SODIUM INJECTION [Suspect]
     Route: 042
     Dates: start: 20071207, end: 20071207
  33. HEPARIN SODIUM INJECTION [Suspect]
     Route: 042
     Dates: start: 20071225, end: 20071225
  34. HEPARIN SODIUM INJECTION [Suspect]
     Route: 042
     Dates: start: 20071225, end: 20071225
  35. HEPARIN SODIUM INJECTION [Suspect]
     Route: 058
     Dates: start: 20071218, end: 20071231
  36. HEPARIN SODIUM INJECTION [Suspect]
     Route: 058
     Dates: start: 20071218, end: 20071231
  37. HEPARIN SODIUM 1,000 UNITS AND SODIUM CHLORIDE 0.9% [Suspect]
     Indication: PRODUCT USED FOR UNKNOWN INDICATION
     Route: 042
     Dates: start: 20071206, end: 20071206
  38. HEPARIN SODIUM INJECTION [Suspect]
     Route: 065
     Dates: start: 20071206, end: 20071206
  39. HEPARIN SODIUM INJECTION [Suspect]
     Route: 065
     Dates: start: 20071206, end: 20071206
  40. HEPARIN SODIUM INJECTION [Suspect]
     Route: 042
     Dates: start: 20071226, end: 20071226
  41. HEPARIN SODIUM INJECTION [Suspect]
     Route: 042
     Dates: start: 20071226, end: 20071226
  42. ACETAMINOPHEN [Concomitant]
     Indication: PRODUCT USED FOR UNKNOWN INDICATION
     Route: 065
  43. XANAX [Concomitant]
     Indication: PRODUCT USED FOR UNKNOWN INDICATION
     Route: 065
  44. MAALOX                                  /USA/ [Concomitant]
     Indication: PRODUCT USED FOR UNKNOWN INDICATION
     Route: 065
  45. ASPIRIN [Concomitant]
     Indication: PRODUCT USED FOR UNKNOWN INDICATION
     Route: 065
  46. COREG [Concomitant]
     Indication: PRODUCT USED FOR UNKNOWN INDICATION
     Route: 065
  47. CATAPRES                                /USA/ [Concomitant]
     Indication: PRODUCT USED FOR UNKNOWN INDICATION
     Route: 065
  48. LASIX [Concomitant]
     Indication: PRODUCT USED FOR UNKNOWN INDICATION
     Route: 065
  49. LISINOPRIL [Concomitant]
     Indication: PRODUCT USED FOR UNKNOWN INDICATION
     Route: 065
  50. MAGNESIUM [Concomitant]
     Indication: PRODUCT USED FOR UNKNOWN INDICATION
     Route: 065
  51. MAGNESIUM HYDROXIDE [Concomitant]
     Indication: PRODUCT USED FOR UNKNOWN INDICATION
     Route: 065
  52. ONDANSETRON HYDROCHLORIDE [Concomitant]
     Indication: PRODUCT USED FOR UNKNOWN INDICATION
     Route: 065
  53. PAROXETINE HYDROCHLORIDE [Concomitant]
     Indication: PRODUCT USED FOR UNKNOWN INDICATION
     Route: 065
  54. POTASSIUM CHLORIDE [Concomitant]
     Indication: PRODUCT USED FOR UNKNOWN INDICATION
     Route: 065
  55. AMBIEN [Concomitant]
     Indication: PRODUCT USED FOR UNKNOWN INDICATION
     Route: 065

REACTIONS (35)
  - ARRHYTHMIA [None]
  - CARDIAC ARREST [None]
  - CARDIAC FAILURE [None]
  - CARDIAC TAMPONADE [None]
  - CARDIOGENIC SHOCK [None]
  - CEREBROVASCULAR ACCIDENT [None]
  - CLOSTRIDIUM DIFFICILE COLITIS [None]
  - DEFORMITY [None]
  - DEHYDRATION [None]
  - DUODENITIS [None]
  - GASTRITIS [None]
  - HAEMOPTYSIS [None]
  - HYPERCALCAEMIA [None]
  - HYPERGLYCAEMIA [None]
  - HYPERNATRAEMIA [None]
  - HYPOTENSION [None]
  - HYPOXIA [None]
  - IMPAIRED GASTRIC EMPTYING [None]
  - LEUKOCYTOSIS [None]
  - LOW CARDIAC OUTPUT SYNDROME [None]
  - MALNUTRITION [None]
  - METABOLIC ACIDOSIS [None]
  - POST PROCEDURAL HAEMORRHAGE [None]
  - PYREXIA [None]
  - RENAL FAILURE [None]
  - RESPIRATORY FAILURE [None]
  - SEPSIS [None]
  - THROMBOCYTOPENIA [None]
  - TOXIC ENCEPHALOPATHY [None]
  - TRAUMATIC LIVER INJURY [None]
  - URINARY TRACT INFECTION ENTEROCOCCAL [None]
  - URINARY TRACT INFECTION FUNGAL [None]
  - URINARY TRACT INFECTION PSEUDOMONAL [None]
  - VENTRICULAR TACHYCARDIA [None]
  - WOUND INFECTION [None]
